FAERS Safety Report 5384755-8 (Version None)
Quarter: 2007Q3

REPORT INFORMATION
  Report Type: 
  Country: None (occurrence: None)
  Receive Date: 20070706
  Receipt Date: 20070508
  Transmission Date: 20080115
  Serious: No
  Sender: FDA-Public Use
  Company Number: PHEH2007US06934

PATIENT
  Sex: Male

DRUGS (2)
  1. TEKTURNA [Suspect]
     Dosage: 300 MG, QD, ORAL
     Route: 048
  2. CLONAZEPAM [Suspect]

REACTIONS (1)
  - FORMICATION [None]
